FAERS Safety Report 7439627-1 (Version None)
Quarter: 2011Q2

REPORT INFORMATION
  Report Type: 
  Country: None (occurrence: None)
  Receive Date: 20110427
  Receipt Date: 20110421
  Transmission Date: 20111010
  Serious: Yes (Other)
  Sender: FDA-Public Use
  Company Number: US-PFIZER INC-2011087644

PATIENT
  Sex: Male

DRUGS (1)
  1. VIAGRA [Suspect]
     Dosage: UNK

REACTIONS (5)
  - TESTIS DISCOMFORT [None]
  - PENILE SWELLING [None]
  - PENILE ERYTHEMA [None]
  - INCORRECT DOSE ADMINISTERED [None]
  - ERECTION INCREASED [None]
